FAERS Safety Report 5957172-7 (Version None)
Quarter: 2008Q4

REPORT INFORMATION
  Report Type: 
  Country: None (occurrence: None)
  Receive Date: 20081117
  Receipt Date: 20081117
  Transmission Date: 20090506
  Serious: Yes (Life-Threatening)
  Sender: FDA-Public Use
  Company Number: None

PATIENT
  Age: 44 Year
  Sex: Female
  Weight: 104.5 kg

DRUGS (3)
  1. RENAGEL [Suspect]
     Indication: BLOOD PHOSPHORUS ABNORMAL
     Dosage: 400MG PO TID MEALS @ 2100
     Route: 048
     Dates: end: 20081111
  2. ALTACE [Suspect]
     Indication: BLOOD PRESSURE
     Dosage: 10MG PO DAILY @ 0900
     Dates: end: 20081110
  3. ALTACE [Suspect]
     Indication: DIABETES MELLITUS
     Dosage: 10MG PO DAILY @ 0900
     Dates: end: 20081110

REACTIONS (4)
  - DYSPNOEA [None]
  - PRURITUS [None]
  - SWELLING [None]
  - SWOLLEN TONGUE [None]
